FAERS Safety Report 7016776-3 (Version None)
Quarter: 2010Q3

REPORT INFORMATION
  Report Type: 
  Country: None (occurrence: None)
  Receive Date: 20100927
  Receipt Date: 20100917
  Transmission Date: 20110219
  Serious: Yes (Hospitalization, Other)
  Sender: FDA-Public Use
  Company Number: US-BAXTER-2010BH022707

PATIENT
  Sex: Female
  Weight: 97 kg

DRUGS (2)
  1. DIANEAL [Suspect]
     Indication: PERITONEAL DIALYSIS
     Route: 033
     Dates: start: 20091101, end: 20100401
  2. DIANEAL [Suspect]
     Route: 033
     Dates: start: 20100517

REACTIONS (3)
  - ADHESION [None]
  - BLOODY PERITONEAL EFFLUENT [None]
  - HERNIA [None]
